FAERS Safety Report 4582798-5 (Version None)
Quarter: 2005Q1

REPORT INFORMATION
  Report Type: 
  Country: None (occurrence: None)
  Receive Date: 20050215
  Receipt Date: 20050208
  Transmission Date: 20050727
  Serious: Yes (Hospitalization)
  Sender: FDA-Public Use
  Company Number: NL-GLAXOSMITHKLINE-B0370703A

PATIENT
  Age: 75 Year
  Sex: Female

DRUGS (5)
  1. TOPOTECAN [Suspect]
     Dosage: 1.7Z PER DAY
     Dates: start: 20050117, end: 20050121
  2. PANTAZOL [Concomitant]
     Dosage: 40MG PER DAY
     Route: 065
     Dates: start: 20050117, end: 20050120
  3. MOVICOLON [Concomitant]
     Route: 065
  4. METOPROLOL [Concomitant]
     Dosage: 50MG PER DAY
  5. ACETYL SALICYLIC ACID [Concomitant]
     Dosage: 80MG PER DAY

REACTIONS (1)
  - MYOCARDIAL INFARCTION [None]
